FAERS Safety Report 15464312 (Version 2)
Quarter: 2018Q4

REPORT INFORMATION
  Report Type: Spontaneous
  Country: IT (occurrence: IT)
  Receive Date: 20181004
  Receipt Date: 20181204
  Transmission Date: 20190204
  Serious: Yes (Hospitalization)
  Sender: FDA-Public Use
  Company Number: PHHY2018IT105706

PATIENT
  Age: 14 Year
  Sex: Female
  Weight: 62 kg

DRUGS (1)
  1. DEFERASIROX. [Suspect]
     Active Substance: DEFERASIROX
     Indication: CHELATION THERAPY
     Dosage: 1080 MG, QD
     Route: 048
     Dates: start: 20171011, end: 20180910

REACTIONS (3)
  - Asthenia [Recovered/Resolved]
  - Pain in extremity [Recovered/Resolved]
  - Hepatic enzyme increased [Recovered/Resolved]

NARRATIVE: CASE EVENT DATE: 20180910
